FAERS Safety Report 10152243 (Version 2)
Quarter: 2014Q2

REPORT INFORMATION
  Report Type: Report from Study
  Country: CZ (occurrence: CZ)
  Receive Date: 20140505
  Receipt Date: 20140507
  Transmission Date: 20141212
  Serious: Yes (Death)
  Sender: FDA-Public Use
  Company Number: PHHY2014CZ054028

PATIENT
  Age: 69 Year
  Sex: Male

DRUGS (2)
  1. IMATINIB [Suspect]
     Indication: GASTROINTESTINAL STROMAL TUMOUR
     Dosage: 400 MG, UNK
     Dates: end: 20130808
  2. IMATINIB [Suspect]
     Dosage: 400 MG, UNK
     Dates: start: 20131126, end: 20140318

REACTIONS (3)
  - Pulmonary embolism [Fatal]
  - Diarrhoea [Recovered/Resolved]
  - Decreased appetite [Recovered/Resolved]
